FAERS Safety Report 9019708 (Version 2)
Quarter: 2013Q3

REPORT INFORMATION
  Report Type: Report from Study
  Country: BR (occurrence: BR)
  Receive Date: 20130118
  Receipt Date: 20130806
  Transmission Date: 20140515
  Serious: Yes (Hospitalization, Disabling)
  Sender: FDA-Public Use
  Company Number: BR-BAYER-2012-129156

PATIENT
  Age: 46 Year
  Sex: Female

DRUGS (8)
  1. LOSARTAN [Concomitant]
     Indication: HYPERTENSION
     Dosage: 50 MG, BID
     Route: 048
     Dates: start: 2010
  2. HYDROCHLOROTHIAZIDE [Concomitant]
     Dosage: 1 DF, BID
     Route: 048
     Dates: start: 2010
  3. AMITRIPTYLINE [Concomitant]
     Indication: DEPRESSION
     Dosage: 1 DF, QD
     Route: 048
     Dates: start: 201205
  4. GABAPENTIN [Concomitant]
     Indication: PAIN
     Dosage: 400 MG, QD
     Route: 048
     Dates: start: 2010
  5. TYLEX [CODEINE PHOSPHATE,PARACETAMOL] [Concomitant]
     Indication: PAIN PROPHYLAXIS
     Dosage: 2 DF, QOD
     Route: 048
     Dates: start: 201210
  6. BETAFERON [Suspect]
     Indication: MULTIPLE SCLEROSIS
     Dosage: 0.250 ML, QOD
     Route: 058
     Dates: start: 201209, end: 2012
  7. BETAFERON [Suspect]
     Indication: MULTIPLE SCLEROSIS
     Dosage: 0.750 ML, QOD
     Route: 058
     Dates: start: 2012, end: 2012
  8. BETAFERON [Suspect]
     Indication: MULTIPLE SCLEROSIS
     Dosage: 1 ML, QOD
     Route: 058
     Dates: start: 201211, end: 201301

REACTIONS (21)
  - Multiple sclerosis relapse [Not Recovered/Not Resolved]
  - Neuralgia [Not Recovered/Not Resolved]
  - Hypoaesthesia [Not Recovered/Not Resolved]
  - Optic neuritis [Not Recovered/Not Resolved]
  - Malaise [Not Recovered/Not Resolved]
  - Vision blurred [Not Recovered/Not Resolved]
  - Blindness [Not Recovered/Not Resolved]
  - Vertigo [Recovered/Resolved]
  - Dizziness [Recovered/Resolved]
  - Injection site erythema [Not Recovered/Not Resolved]
  - Injection site hypertrophy [Not Recovered/Not Resolved]
  - Injection site pain [Not Recovered/Not Resolved]
  - Abasia [Not Recovered/Not Resolved]
  - Musculoskeletal stiffness [Not Recovered/Not Resolved]
  - Mobility decreased [Not Recovered/Not Resolved]
  - Musculoskeletal stiffness [Not Recovered/Not Resolved]
  - Feeling hot [Not Recovered/Not Resolved]
  - Feeling cold [Not Recovered/Not Resolved]
  - Chills [Not Recovered/Not Resolved]
  - Drug ineffective [None]
  - Drug hypersensitivity [None]
